FAERS Safety Report 15854136 (Version 1)
Quarter: 2019Q1

REPORT INFORMATION
  Report Type: Spontaneous
  Country: US (occurrence: US)
  Receive Date: 20190122
  Receipt Date: 20190122
  Transmission Date: 20190417
  Serious: Yes (Other)
  Sender: FDA-Public Use
  Company Number: US-THE MENTHOLATUM COMPANY-2061551

PATIENT
  Age: 37 Year
  Sex: Male
  Weight: 70.46 kg

DRUGS (1)
  1. OXY RAPID TREATMENT FACE WASH MAXIMUM ACTION [Suspect]
     Active Substance: BENZOYL PEROXIDE
     Indication: ACNE
     Route: 061
     Dates: start: 20181228, end: 20181228

REACTIONS (1)
  - Application site irritation [Recovering/Resolving]

NARRATIVE: CASE EVENT DATE: 20181228
